FAERS Safety Report 24539972 (Version 1)
Quarter: 2024Q4

REPORT INFORMATION
  Report Type: Spontaneous
  Country: US (occurrence: None)
  Receive Date: 20241022
  Receipt Date: 20241022
  Transmission Date: 20250115
  Serious: Yes (Hospitalization, Other)
  Sender: Public
  Company Number: None

PATIENT
  Age: 21 Year
  Sex: Female
  Weight: 81 kg

DRUGS (1)
  1. MONISTAT 7 [Suspect]
     Active Substance: MICONAZOLE NITRATE
     Indication: Fungal infection
     Dosage: OTHER QUANTITY : 1 INJECTION(S);?FREQUENCY : DAILY;?
     Route: 067
     Dates: start: 20241021, end: 20241022

REACTIONS (5)
  - Vulvovaginal pain [None]
  - Vulvovaginal burning sensation [None]
  - Vulvovaginal pruritus [None]
  - Loss of personal independence in daily activities [None]
  - Discomfort [None]

NARRATIVE: CASE EVENT DATE: 20241022
